FAERS Safety Report 9065257 (Version 1)
Quarter: 2013Q1

REPORT INFORMATION
  Report Type: Spontaneous
  Country: TW (occurrence: TW)
  Receive Date: 20130214
  Receipt Date: 20130214
  Transmission Date: 20140127
  Serious: Yes (Hospitalization, Other)
  Sender: FDA-Public Use
  Company Number: 2013SP002243

PATIENT
  Age: 58 Year
  Sex: Male

DRUGS (6)
  1. FLUOROURACIL [Suspect]
     Indication: COLON CANCER
  2. FLUOROURACIL [Suspect]
     Indication: COLON CANCER
  3. IRINOTECAN HYDROCHLORIDE [Concomitant]
     Indication: COLON CANCER
  4. IRINOTECAN HYDROCHLORIDE [Concomitant]
     Indication: COLON CANCER
  5. BEVACIZUMAB [Concomitant]
     Indication: COLON CANCER
  6. BEVACIZUMAB [Concomitant]
     Indication: COLON CANCER

REACTIONS (9)
  - Hyperammonaemic encephalopathy [Recovered/Resolved]
  - Renal failure acute [Recovered/Resolved]
  - Somnolence [Recovered/Resolved]
  - Mental status changes [Recovered/Resolved]
  - Lethargy [Recovered/Resolved]
  - Dysarthria [Recovered/Resolved]
  - Nausea [Unknown]
  - Vomiting [Unknown]
  - Blood pressure decreased [None]
